FAERS Safety Report 4447163-X (Version None)
Quarter: 2004Q3

REPORT INFORMATION
  Report Type: 
  Country: None (occurrence: None)
  Receive Date: 20040908
  Receipt Date: 20040908
  Transmission Date: 20050211
  Serious: No
  Sender: FDA-Public Use
  Company Number: None

PATIENT
  Sex: Female
  Weight: 88 kg

DRUGS (5)
  1. GLYBURIDE AND METFORMIN HCL [Suspect]
     Indication: DIABETES MELLITUS NON-INSULIN-DEPENDENT
     Dosage: PO BID
     Route: 048
  2. ENALAPRIL [Concomitant]
  3. TOPROL-XL [Concomitant]
  4. LOVASTATIN [Concomitant]
  5. ZOLOFT [Concomitant]

REACTIONS (2)
  - ABDOMINAL DISTENSION [None]
  - DYSGEUSIA [None]
